FAERS Safety Report 10496624 (Version 3)
Quarter: 2015Q1

REPORT INFORMATION
  Report Type: Spontaneous
  Country: US (occurrence: US)
  Receive Date: 20141005
  Receipt Date: 20150127
  Transmission Date: 20150720
  Serious: Yes (Other)
  Sender: FDA-Public Use
  Company Number: US-BRISTOL-MYERS SQUIBB COMPANY-21398953

PATIENT
  Age: 65 Year
  Sex: Male

DRUGS (8)
  1. ASPIRIN                            /00002701/ [Concomitant]
     Active Substance: ASPIRIN
  2. HUMALOG [Concomitant]
     Active Substance: INSULIN LISPRO
  3. TRILIPIX [Concomitant]
     Active Substance: FENOFIBRIC ACID
  4. BYETTA [Suspect]
     Active Substance: EXENATIDE
     Indication: PRODUCT USED FOR UNKNOWN INDICATION
     Dosage: 10 ?G, UNK
     Route: 065
     Dates: start: 200712, end: 200908
  5. APIDRA [Concomitant]
     Active Substance: INSULIN GLULISINE
  6. ALLOPURINOL. [Concomitant]
     Active Substance: ALLOPURINOL
  7. LOVASTATIN. [Concomitant]
     Active Substance: LOVASTATIN
  8. ENALAPRIL [Concomitant]
     Active Substance: ENALAPRIL

REACTIONS (1)
  - Papillary thyroid cancer [Unknown]

NARRATIVE: CASE EVENT DATE: 20100424
